FAERS Safety Report 13133048 (Version 1)
Quarter: 2017Q1

REPORT INFORMATION
  Report Type: Spontaneous
  Country: US (occurrence: US)
  Receive Date: 20170119
  Receipt Date: 20170119
  Transmission Date: 20170428
  Serious: Yes (Hospitalization)
  Sender: FDA-Public Use
  Company Number: None

PATIENT
  Age: 26 Year
  Sex: Female
  Weight: 58.5 kg

DRUGS (2)
  1. DULOXETINE. [Suspect]
     Active Substance: DULOXETINE
     Indication: HEADACHE
     Route: 048
     Dates: start: 20170111, end: 20170118
  2. DULOXETINE. [Suspect]
     Active Substance: DULOXETINE
     Indication: DEPRESSION
     Route: 048
     Dates: start: 20170111, end: 20170118

REACTIONS (3)
  - Vomiting [None]
  - Product label issue [None]
  - Burning sensation [None]

NARRATIVE: CASE EVENT DATE: 20170116
